FAERS Safety Report 6691676-7 (Version None)
Quarter: 2010Q2

REPORT INFORMATION
  Report Type: 
  Country: None (occurrence: None)
  Receive Date: 20100422
  Receipt Date: 20091111
  Transmission Date: 20101027
  Serious: No
  Sender: FDA-Public Use
  Company Number: US-ASTRAZENECA-2009SE26299

PATIENT
  Age: 70 Year
  Sex: Female
  Weight: 62.6 kg

DRUGS (4)
  1. TOPROL-XL [Suspect]
     Indication: HYPERTENSION
     Route: 048
  2. TOPROL-XL [Suspect]
     Indication: PALPITATIONS
     Route: 048
  3. NIACIN [Suspect]
     Indication: HYPERCHOLESTEROLAEMIA
     Route: 065
     Dates: start: 20090819, end: 20091101
  4. NIACIN [Suspect]
     Route: 065
     Dates: start: 20091102, end: 20091107

REACTIONS (5)
  - ARTHRALGIA [None]
  - HEADACHE [None]
  - MYALGIA [None]
  - PRURITUS [None]
  - SUNBURN [None]
